FAERS Safety Report 8510888-0 (Version None)
Quarter: 2012Q3

REPORT INFORMATION
  Report Type: 
  Country: None (occurrence: None)
  Receive Date: 20120716
  Receipt Date: 20120710
  Transmission Date: 20120928
  Serious: Yes (Other)
  Sender: FDA-Public Use
  Company Number: US-BAYER-2012-069044

PATIENT
  Age: 35 Year
  Sex: Female

DRUGS (1)
  1. MIRENA [Suspect]
     Indication: CONTRACEPTION
     Dosage: 20 MCG/24HR, CONT
     Route: 015
     Dates: start: 20120611

REACTIONS (5)
  - POST PROCEDURAL HAEMORRHAGE [None]
  - ABDOMINAL PAIN [None]
  - METRORRHAGIA [None]
  - UTERINE HAEMORRHAGE [None]
  - DYSMENORRHOEA [None]
